FAERS Safety Report 6544523-8 (Version None)
Quarter: 2010Q1

REPORT INFORMATION
  Report Type: 
  Country: None (occurrence: None)
  Receive Date: 20100115
  Receipt Date: 20091204
  Transmission Date: 20100710
  Serious: Yes (Hospitalization)
  Sender: FDA-Public Use
  Company Number: 230338J09BRA

PATIENT
  Sex: Male

DRUGS (3)
  1. REBIF [Suspect]
     Indication: RELAPSING-REMITTING MULTIPLE SCLEROSIS
     Dosage: 44 MCG, 3 IN 1 WEEKS
     Dates: start: 20060101
  2. FLUOXETINE (FLUOXETINE /00724401/) [Concomitant]
  3. VITAMIN COMPLEX (VITAMINS) [Concomitant]

REACTIONS (1)
  - CHOLELITHIASIS [None]
